FAERS Safety Report 17215088 (Version 2)
Quarter: 2020Q4

REPORT INFORMATION
  Report Type: Report from Study
  Country: US (occurrence: US)
  Receive Date: 20191230
  Receipt Date: 20201229
  Transmission Date: 20210113
  Serious: No
  Sender: FDA-Public Use
  Company Number: US-CLOVIS ONCOLOGY-CLO-2019-002137

PATIENT
  Sex: Female
  Weight: 66.67 kg

DRUGS (2)
  1. RUBRACA [Suspect]
     Active Substance: RUCAPARIB CAMSYLATE
     Indication: OVARIAN CANCER
     Dosage: 200 MG, BID
     Route: 048
     Dates: start: 20191004
  2. RUBRACA [Suspect]
     Active Substance: RUCAPARIB CAMSYLATE
     Dosage: 300 MG, BID
     Route: 048
     Dates: start: 20191004

REACTIONS (6)
  - Hypersensitivity [Unknown]
  - Hypersomnia [Not Recovered/Not Resolved]
  - Urinary tract infection [Unknown]
  - Decreased appetite [Unknown]
  - Ageusia [Unknown]
  - Fatigue [Not Recovered/Not Resolved]

NARRATIVE: CASE EVENT DATE: 2019
